FAERS Safety Report 8832421 (Version 1)
Quarter: 2012Q4

REPORT INFORMATION
  Report Type: Spontaneous
  Country: TR (occurrence: None)
  Receive Date: 20121005
  Receipt Date: 20121005
  Transmission Date: 20130627
  Serious: Yes (Death)
  Sender: FDA-Public Use
  Company Number: FK201202888

PATIENT
  Age: 19 Year
  Sex: Female

DRUGS (3)
  1. VALPROATE [Suspect]
     Indication: CHOREA
     Dates: start: 20090622
  2. STREPTOMYCIN [Suspect]
     Indication: BRUCELLOSIS
  3. DOXYCYCLINE [Suspect]
     Indication: BRUCELLOSIS

REACTIONS (17)
  - Drug reaction with eosinophilia and systemic symptoms [None]
  - Heart rate increased [None]
  - Respiratory rate increased [None]
  - White blood cell count increased [None]
  - Haemoglobin decreased [None]
  - Platelet disorder [None]
  - Ammonia increased [None]
  - Blood albumin decreased [None]
  - Pleural effusion [None]
  - Acute tonsillitis [None]
  - Staphylococcal infection [None]
  - Encephalopathy [None]
  - Granulomatosis with polyangiitis [None]
  - Metabolic acidosis [None]
  - Respiratory alkalosis [None]
  - Lactic acidosis [None]
  - General physical health deterioration [None]
